FAERS Safety Report 6462596-8 (Version None)
Quarter: 2009Q4

REPORT INFORMATION
  Report Type: 
  Country: None (occurrence: None)
  Receive Date: 20091130
  Receipt Date: 20091119
  Transmission Date: 20100525
  Serious: Yes (Other)
  Sender: FDA-Public Use
  Company Number: SE-PFIZER INC-2009300453

PATIENT
  Sex: Female

DRUGS (1)
  1. LESTID [Suspect]
     Indication: MALABSORPTION
     Dosage: 5 MG/24H, UNK
     Dates: start: 20080101

REACTIONS (4)
  - BLOOD PRESSURE INCREASED [None]
  - DUODENAL ULCER [None]
  - OEDEMA [None]
  - WEIGHT INCREASED [None]
